FAERS Safety Report 18179538 (Version 3)
Quarter: 2020Q3

REPORT INFORMATION
  Report Type: Spontaneous
  Country: US (occurrence: US)
  Receive Date: 20200820
  Receipt Date: 20200903
  Transmission Date: 20201103
  Serious: Yes (Life-Threatening, Hospitalization)
  Sender: FDA-Public Use
  Company Number: US-TEVA-2020-US-1815233

PATIENT
  Age: 67 Year
  Sex: Female

DRUGS (22)
  1. ENOXAPARIN SODIUM. [Suspect]
     Active Substance: ENOXAPARIN SODIUM
     Indication: PROPHYLAXIS
     Dosage: 40 MILLIGRAM DAILY; STARTED 1 DAY AFTER THE OPERATION
     Route: 058
  2. APIXABAN [Suspect]
     Active Substance: APIXABAN
     Indication: ANTICOAGULANT THERAPY
     Dosage: 20 MILLIGRAM DAILY;
     Route: 048
  3. TENECTEPLASE [Concomitant]
     Active Substance: TENECTEPLASE
     Indication: DEEP VEIN THROMBOSIS
  4. NITROGLYCERIN. [Concomitant]
     Active Substance: NITROGLYCERIN
     Indication: PERIPHERAL ARTERY THROMBOSIS
  5. METOPROLOL. [Concomitant]
     Active Substance: METOPROLOL
     Indication: PERIPHERAL ARTERY THROMBOSIS
  6. HEPARIN [Suspect]
     Active Substance: HEPARIN SODIUM
     Indication: ANTICOAGULANT THERAPY
     Route: 040
  7. ASPIRIN. [Concomitant]
     Active Substance: ASPIRIN
     Indication: ACUTE MYOCARDIAL INFARCTION
     Route: 048
  8. NITROGLYCERIN. [Concomitant]
     Active Substance: NITROGLYCERIN
     Indication: ACUTE MYOCARDIAL INFARCTION
     Dosage: 1 INCH OF 2% NITROGLYCERIN PASTE
     Route: 065
  9. NITROGLYCERIN. [Concomitant]
     Active Substance: NITROGLYCERIN
     Indication: DEEP VEIN THROMBOSIS
  10. METOPROLOL. [Concomitant]
     Active Substance: METOPROLOL
     Indication: ACUTE MYOCARDIAL INFARCTION
     Dosage: 50 MILLIGRAM DAILY;
     Route: 065
  11. HYDROMORPHONE [Concomitant]
     Active Substance: HYDROMORPHONE
     Indication: ANALGESIC THERAPY
     Dosage: AS NEEDED
     Route: 065
  12. APIXABAN [Suspect]
     Active Substance: APIXABAN
     Indication: HEPARIN-INDUCED THROMBOCYTOPENIA
  13. ASPIRIN. [Concomitant]
     Active Substance: ASPIRIN
     Indication: PERIPHERAL ARTERY THROMBOSIS
  14. TENECTEPLASE [Concomitant]
     Active Substance: TENECTEPLASE
     Indication: PERIPHERAL ARTERY THROMBOSIS
  15. METOPROLOL. [Concomitant]
     Active Substance: METOPROLOL
     Indication: DEEP VEIN THROMBOSIS
  16. ATORVASTATIN [Concomitant]
     Active Substance: ATORVASTATIN
     Indication: DEEP VEIN THROMBOSIS
     Dosage: 80 MILLIGRAM DAILY;
     Route: 065
  17. ATORVASTATIN [Concomitant]
     Active Substance: ATORVASTATIN
     Indication: DEEP VEIN THROMBOSIS
  18. HEPARIN [Suspect]
     Active Substance: HEPARIN SODIUM
     Route: 041
  19. ARGATROBAN. [Concomitant]
     Active Substance: ARGATROBAN
     Indication: ANTICOAGULANT THERAPY
     Route: 041
  20. ASPIRIN. [Concomitant]
     Active Substance: ASPIRIN
     Indication: DEEP VEIN THROMBOSIS
  21. TENECTEPLASE [Concomitant]
     Active Substance: TENECTEPLASE
     Indication: ACUTE MYOCARDIAL INFARCTION
     Dosage: SINGLE BOLUS
     Route: 040
  22. ATORVASTATIN [Concomitant]
     Active Substance: ATORVASTATIN
     Indication: PERIPHERAL ARTERY THROMBOSIS

REACTIONS (7)
  - Thrombocytopenia [Recovered/Resolved]
  - Peripheral artery thrombosis [Recovered/Resolved]
  - Deep vein thrombosis [Recovered/Resolved]
  - Off label use [Unknown]
  - Acute myocardial infarction [Recovered/Resolved]
  - Heparin-induced thrombocytopenia [Recovered/Resolved]
  - Embolism arterial [Recovered/Resolved]
